FAERS Safety Report 10250505 (Version 2)
Quarter: 2014Q2

REPORT INFORMATION
  Report Type: Spontaneous
  Country: US (occurrence: US)
  Receive Date: 20140620
  Receipt Date: 20140620
  Transmission Date: 20141212
  Serious: Yes (Other)
  Sender: FDA-Public Use
  Company Number: US-BRISTOL-MYERS SQUIBB COMPANY-20417283

PATIENT
  Age: 75 Year
  Sex: Female

DRUGS (1)
  1. SPRYCEL (CML) TABS 100 MG [Suspect]
     Indication: CHRONIC MYELOID LEUKAEMIA
     Dosage: LOT NO:3M55O15B
     Route: 048

REACTIONS (4)
  - Bone loss [Unknown]
  - Muscle spasms [Recovering/Resolving]
  - Ocular hyperaemia [Unknown]
  - Constipation [Unknown]
